FAERS Safety Report 9042289 (Version 1)
Quarter: 2013Q1

REPORT INFORMATION
  Report Type: Report from Study
  Country: US (occurrence: US)
  Receive Date: 20130129
  Receipt Date: 20130129
  Transmission Date: 20140127
  Serious: No
  Sender: FDA-Public Use
  Company Number: US-ABBOTT-12P-163-0908336-00

PATIENT
  Sex: Female
  Weight: 74.91 kg

DRUGS (13)
  1. HUMIRA 40 MG/0.8 ML PEN [Suspect]
     Indication: RHEUMATOID ARTHRITIS
     Dates: start: 201107, end: 201109
  2. HUMIRA 40 MG/0.8 ML PEN [Suspect]
     Dates: start: 201202
  3. REMICADE [Suspect]
     Indication: RHEUMATOID ARTHRITIS
     Dates: start: 201110, end: 201111
  4. CELEBREX [Concomitant]
     Indication: RHEUMATOID ARTHRITIS
  5. LISINOPRIL/HCTZ [Concomitant]
     Indication: HYPERTENSION
  6. LEVASTATIN [Concomitant]
     Indication: BLOOD CHOLESTEROL INCREASED
  7. AMLODIPINE [Concomitant]
     Indication: HYPERTENSION
  8. ATENOLOL [Concomitant]
     Indication: HYPERTENSION
  9. HYDROCODONE/ACETAMINOPHEN [Concomitant]
     Indication: PAIN
  10. BUTRANE PATCH [Concomitant]
     Indication: PAIN
  11. FISH OIL [Concomitant]
     Indication: SUPPLEMENTATION THERAPY
  12. MULTIVITAMIN [Concomitant]
     Indication: SUPPLEMENTATION THERAPY
  13. ARAVA [Concomitant]
     Indication: RHEUMATOID ARTHRITIS

REACTIONS (3)
  - Drug ineffective [Recovered/Resolved]
  - Nasopharyngitis [Not Recovered/Not Resolved]
  - Pustular psoriasis [Recovering/Resolving]
